FAERS Safety Report 14327386 (Version 3)
Quarter: 2019Q1

REPORT INFORMATION
  Report Type: Spontaneous
  Country: US (occurrence: US)
  Receive Date: 20171227
  Receipt Date: 20190109
  Transmission Date: 20190417
  Serious: Yes (Hospitalization)
  Sender: FDA-Public Use
  Company Number: US-PFIZER INC-2017258755

PATIENT
  Age: 65 Year
  Sex: Female

DRUGS (17)
  1. PROPRANOLOL [Concomitant]
     Active Substance: PROPRANOLOL HYDROCHLORIDE
     Dosage: 80 MG, DAILY
  2. LISINOPRIL. [Concomitant]
     Active Substance: LISINOPRIL
     Dosage: 0.5 DF, 2X/DAY (1/2 TWICE DAILY)
  3. TRAMADOL. [Concomitant]
     Active Substance: TRAMADOL
     Dosage: 50 MG, 2X/DAY
  4. FUROSEMIDE. [Concomitant]
     Active Substance: FUROSEMIDE
     Dosage: 80 MG, UNK (80 MG- MON-WED AND FRI)
  5. FLECAINIDE [Concomitant]
     Active Substance: FLECAINIDE
     Dosage: 50 MG, 2X/DAY
  6. ISOSORBIDE. [Concomitant]
     Active Substance: ISOSORBIDE
     Dosage: 5 MG, 2X/DAY
  7. ASPIRIN. [Concomitant]
     Active Substance: ASPIRIN
     Dosage: 81 MG, DAILY
  8. FUROSEMIDE. [Concomitant]
     Active Substance: FUROSEMIDE
     Dosage: 60 MG, UNK (60 MG- 4 TIMES A WEEK)
  9. POTASSIUM CHLORIDE. [Concomitant]
     Active Substance: POTASSIUM CHLORIDE
     Dosage: 40 MEQ, DAILY
  10. WARFARIN [Concomitant]
     Active Substance: WARFARIN
     Dosage: 5 MG, DAILY
  11. DIVALPROEX [Concomitant]
     Active Substance: DIVALPROEX SODIUM
     Dosage: 1500 MG, 1X/DAY (3 NIGHTLY)
  12. LYRICA [Suspect]
     Active Substance: PREGABALIN
     Indication: GAIT DISTURBANCE
     Dosage: 150 MG, 3X/DAY
     Route: 048
  13. CRANBERRY. [Concomitant]
     Active Substance: CRANBERRY
     Dosage: 1000 MG, DAILY
  14. VITAMIN E [Concomitant]
     Active Substance: .ALPHA.-TOCOPHEROL
     Dosage: 400 IU, DAILY
  15. ATORVASTATIN [Concomitant]
     Active Substance: ATORVASTATIN
     Dosage: 10 MG, DAILY
  16. LEVOTHYROXINE. [Concomitant]
     Active Substance: LEVOTHYROXINE
     Dosage: 0.1 MG, DAILY
  17. OMEPRAZOLE. [Concomitant]
     Active Substance: OMEPRAZOLE
     Dosage: 80 MG, DAILY

REACTIONS (3)
  - Pain [Not Recovered/Not Resolved]
  - Burning sensation [Not Recovered/Not Resolved]
  - Product use in unapproved indication [Unknown]
